FAERS Safety Report 5667718-4 (Version None)
Quarter: 2008Q1

REPORT INFORMATION
  Report Type: 
  Country: None (occurrence: None)
  Receive Date: 20080315
  Receipt Date: 20080130
  Transmission Date: 20080703
  Serious: No
  Sender: FDA-Public Use
  Company Number: US-ABBOTT-08P-163-0436011-00

PATIENT
  Sex: Female
  Weight: 88.984 kg

DRUGS (16)
  1. HUMIRA [Suspect]
     Indication: RHEUMATOID ARTHRITIS
     Route: 058
     Dates: start: 20080118, end: 20080205
  2. CHANTIX [Concomitant]
     Indication: SMOKING CESSATION THERAPY
     Dates: start: 20071201
  3. PREGABALIN [Concomitant]
     Indication: FIBROMYALGIA
  4. DULOXETINE HYDROCHLORIDE [Concomitant]
     Indication: DRUG USE FOR UNKNOWN INDICATION
  5. TRIAZADONE [Concomitant]
     Indication: DRUG USE FOR UNKNOWN INDICATION
  6. ESOMEPRAZOLE MAGNESIUM [Concomitant]
     Indication: DRUG USE FOR UNKNOWN INDICATION
  7. PRAMIPEXOLE DIHYDROCHLORIDE [Concomitant]
     Indication: DRUG USE FOR UNKNOWN INDICATION
  8. ZOLPIDEM TARTRATE [Concomitant]
     Indication: DRUG USE FOR UNKNOWN INDICATION
  9. ROSUVASTATIN [Concomitant]
     Indication: DRUG USE FOR UNKNOWN INDICATION
  10. CLOPIDOGREL [Concomitant]
     Indication: DRUG USE FOR UNKNOWN INDICATION
  11. FOLIC ACID [Concomitant]
     Indication: DRUG USE FOR UNKNOWN INDICATION
  12. DONNATAL [Concomitant]
     Indication: DRUG USE FOR UNKNOWN INDICATION
  13. METHOTREXATE [Concomitant]
     Indication: RHEUMATOID ARTHRITIS
  14. LEKOVIT CA [Concomitant]
     Indication: DRUG USE FOR UNKNOWN INDICATION
     Route: 048
  15. CENTRUM [Concomitant]
     Indication: DRUG USE FOR UNKNOWN INDICATION
  16. VICODIN [Concomitant]
     Indication: ARTHRALGIA

REACTIONS (1)
  - NASOPHARYNGITIS [None]
